FAERS Safety Report 8789672 (Version 1)
Quarter: 2012Q4

REPORT INFORMATION
  Report Type: Spontaneous
  Country: US (occurrence: None)
  Receive Date: 20120905
  Receipt Date: 20120905
  Transmission Date: 20130627
  Serious: Yes (Other)
  Sender: FDA-Public Use
  Company Number: ADR-2012-01612

PATIENT
  Sex: Male

DRUGS (4)
  1. BACLOFEN [Suspect]
     Indication: TUMOR PAIN
  2. BACLOFEN [Suspect]
     Indication: TUMOR PAIN
  3. CLONIDINE [Concomitant]
  4. DILAUDID (HYDROMORPHONE) [Concomitant]

REACTIONS (7)
  - Feeling abnormal [None]
  - Withdrawal syndrome [None]
  - Hot flush [None]
  - Nausea [None]
  - Influenza like illness [None]
  - Pain [None]
  - Device malfunction [None]
